FAERS Safety Report 10539609 (Version 1)
Quarter: 2014Q4

REPORT INFORMATION
  Report Type: Spontaneous
  Country: US (occurrence: US)
  Receive Date: 20141023
  Receipt Date: 20141023
  Transmission Date: 20150529
  Serious: No
  Sender: FDA-Public Use
  Company Number: US-ALLERGAN-1418262US

PATIENT
  Age: 59 Year
  Sex: Male

DRUGS (2)
  1. LIALDA [Concomitant]
     Active Substance: MESALAMINE
     Indication: COLITIS ULCERATIVE
     Dosage: UNK
  2. COMBIGAN[R] [Suspect]
     Active Substance: BRIMONIDINE TARTRATE\TIMOLOL MALEATE
     Indication: GLAUCOMA
     Dosage: 2 GTT, BID
     Route: 047
     Dates: start: 20140603

REACTIONS (8)
  - Eye irritation [Unknown]
  - Scleral hyperaemia [Unknown]
  - Conjunctival hyperaemia [Unknown]
  - Eye pain [Unknown]
  - Erythema [Unknown]
  - Conjunctivitis allergic [Unknown]
  - Conjunctival follicles [Unknown]
  - Eye pruritus [Unknown]

NARRATIVE: CASE EVENT DATE: 201407
